FAERS Safety Report 14700013 (Version 3)
Quarter: 2019Q1

REPORT INFORMATION
  Report Type: Spontaneous
  Country: US (occurrence: US)
  Receive Date: 20180330
  Receipt Date: 20190304
  Transmission Date: 20190417
  Serious: Yes (Other)
  Sender: FDA-Public Use
  Company Number: US-PFIZER INC-2018129676

PATIENT
  Age: 59 Year
  Sex: Male
  Weight: 113.38 kg

DRUGS (22)
  1. PRILOSEC OTC [Suspect]
     Active Substance: OMEPRAZOLE MAGNESIUM
     Dosage: UNK
     Dates: start: 198909, end: 200706
  2. AVAPRO [Concomitant]
     Active Substance: IRBESARTAN
     Indication: BLOOD PRESSURE ABNORMAL
     Dosage: UNK
     Dates: start: 20010214, end: 20040301
  3. LIPITOR [Concomitant]
     Active Substance: ATORVASTATIN CALCIUM
     Indication: BLOOD PRESSURE ABNORMAL
     Dosage: UNK
     Dates: start: 20010326, end: 20110202
  4. TACROLIMUS. [Concomitant]
     Active Substance: TACROLIMUS
     Indication: TRANSPLANT REJECTION
     Dosage: UNK
     Dates: start: 20091113, end: 20100421
  5. NEXIUM [Suspect]
     Active Substance: ESOMEPRAZOLE MAGNESIUM
     Dosage: 40 MG, 1X/DAY
     Dates: start: 20050519, end: 20050902
  6. PROTONIX [Suspect]
     Active Substance: PANTOPRAZOLE SODIUM
     Dosage: 40 MG, 1X/DAY
     Dates: start: 20050929, end: 20070620
  7. OMEPRAZOLE. [Suspect]
     Active Substance: OMEPRAZOLE
     Indication: GASTROOESOPHAGEAL REFLUX DISEASE
     Dosage: 20 MG, 1X/DAY
     Dates: start: 20030422, end: 20050827
  8. ALLOPURINOL. [Concomitant]
     Active Substance: ALLOPURINOL
     Dosage: UNK
     Dates: start: 20080707, end: 20081118
  9. TRAMADOL. [Concomitant]
     Active Substance: TRAMADOL
     Indication: INFECTION
     Dosage: UNK
     Dates: start: 20131212, end: 20160803
  10. NEXIUM [Suspect]
     Active Substance: ESOMEPRAZOLE MAGNESIUM
     Indication: GASTROOESOPHAGEAL REFLUX DISEASE
     Dosage: UNK
     Dates: start: 198909, end: 200706
  11. PRILOSEC [Suspect]
     Active Substance: OMEPRAZOLE MAGNESIUM
     Indication: GASTROOESOPHAGEAL REFLUX DISEASE
     Dosage: UNK
     Dates: start: 198909, end: 200706
  12. PRILOSEC [Suspect]
     Active Substance: OMEPRAZOLE MAGNESIUM
     Dosage: 20 MG, 1X/DAY
     Dates: start: 19890914
  13. FLUOXETINE [Concomitant]
     Active Substance: FLUOXETINE HYDROCHLORIDE
     Indication: DEPRESSION
     Dosage: UNK
     Dates: start: 20140826, end: 20160621
  14. OMEPRAZOLE. [Suspect]
     Active Substance: OMEPRAZOLE
     Dosage: 20 MG, 1X/DAY
     Dates: start: 20070717, end: 20160802
  15. PROGRAF [Concomitant]
     Active Substance: TACROLIMUS\TACROLIMUS ANHYDROUS
     Indication: TRANSPLANT REJECTION
     Dosage: UNK
     Dates: start: 20070613, end: 20091015
  16. ZITHROMAX [Concomitant]
     Active Substance: AZITHROMYCIN DIHYDRATE
     Indication: INFECTION
     Dosage: UNK
     Dates: start: 20050308, end: 20050408
  17. AZITHROMYCIN ANHYDROUS. [Concomitant]
     Active Substance: AZITHROMYCIN ANHYDROUS
     Indication: INFECTION
     Dosage: UNK
     Dates: start: 20070309, end: 20081110
  18. PROTONIX [Suspect]
     Active Substance: PANTOPRAZOLE SODIUM
     Indication: GASTROOESOPHAGEAL REFLUX DISEASE
     Dosage: UNK
     Dates: start: 198909, end: 200706
  19. TACROLIMUS. [Concomitant]
     Active Substance: TACROLIMUS
     Dosage: UNK
     Dates: start: 20160229, end: 20160912
  20. VIGAMOX [Concomitant]
     Active Substance: MOXIFLOXACIN HYDROCHLORIDE
     Indication: INFECTION
     Dosage: UNK
     Dates: start: 20050310, end: 20050405
  21. ALLOPURINOL. [Concomitant]
     Active Substance: ALLOPURINOL
     Indication: GOUT
     Dosage: UNK
     Dates: start: 20011101, end: 20020304
  22. ASPIRIN (E.C.) [Concomitant]
     Active Substance: ASPIRIN
     Indication: PAIN
     Dosage: UNK
     Dates: start: 2009, end: 2019

REACTIONS (2)
  - Chronic kidney disease [Not Recovered/Not Resolved]
  - End stage renal disease [Not Recovered/Not Resolved]

NARRATIVE: CASE EVENT DATE: 1998
